FAERS Safety Report 25386116 (Version 2)
Quarter: 2025Q2

REPORT INFORMATION
  Report Type: Report from Study
  Country: US (occurrence: US)
  Receive Date: 20250602
  Receipt Date: 20250611
  Transmission Date: 20250717
  Serious: Yes (Death)
  Sender: JAZZ
  Company Number: US-JAZZ PHARMACEUTICALS-2025-US-013857

PATIENT
  Age: 1 Year
  Sex: Female

DRUGS (1)
  1. EPIDIOLEX [Suspect]
     Active Substance: CANNABIDIOL
     Indication: Infantile spasms
     Dosage: 1.4 MILLILITER, BID VIA G-TUBE
     Dates: start: 202411

REACTIONS (2)
  - Death [Fatal]
  - Off label use [Unknown]

NARRATIVE: CASE EVENT DATE: 20250527
